FAERS Safety Report 5446369-0 (Version None)
Quarter: 2007Q3

REPORT INFORMATION
  Report Type: 
  Country: None (occurrence: None)
  Receive Date: 20070907
  Receipt Date: 20070904
  Transmission Date: 20080115
  Serious: Yes (Hospitalization)
  Sender: FDA-Public Use
  Company Number: B0485680A

PATIENT
  Sex: Male

DRUGS (3)
  1. VALTREX [Suspect]
     Indication: HERPES ZOSTER
     Dosage: 1000MG VARIABLE DOSE
     Route: 048
     Dates: start: 20070718, end: 20070719
  2. PRECIPITATED CALCIUM CARBONATE [Concomitant]
     Route: 048
  3. RENAGEL [Concomitant]
     Route: 048

REACTIONS (1)
  - DIZZINESS [None]
